FAERS Safety Report 18612469 (Version 1)
Quarter: 2020Q4

REPORT INFORMATION
  Report Type: Spontaneous
  Country: US (occurrence: US)
  Receive Date: 20201214
  Receipt Date: 20201214
  Transmission Date: 20210114
  Serious: No
  Sender: FDA-Public Use
  Company Number: US-MYLANLABS-2020M1096196

PATIENT
  Age: 3 Month
  Sex: Male
  Weight: 7 kg

DRUGS (2)
  1. PEPSIDOL [Concomitant]
     Dosage: 2 MILLILITER, QD
  2. LANSOPRAZOLE DELAYED-RELEASE ORALLY DISINTEGRATING TABLETS [Suspect]
     Active Substance: LANSOPRAZOLE
     Indication: GASTROOESOPHAGEAL REFLUX DISEASE
     Dosage: HALF A TABLET TWICE DAILY
     Route: 048
     Dates: start: 20201113

REACTIONS (2)
  - Rash erythematous [Not Recovered/Not Resolved]
  - Rash papular [Not Recovered/Not Resolved]

NARRATIVE: CASE EVENT DATE: 20201113
